FAERS Safety Report 25690766 (Version 1)
Quarter: 2025Q3

REPORT INFORMATION
  Report Type: Spontaneous
  Country: US (occurrence: None)
  Receive Date: 20250817
  Receipt Date: 20250817
  Transmission Date: 20251020
  Serious: Yes (Disabling, Other)
  Sender: FDA-CTU
  Company Number: None

PATIENT
  Age: 67 Year
  Sex: Male
  Weight: 57.6 kg

DRUGS (5)
  1. CETIRIZINE HYDROCHLORIDE [Suspect]
     Active Substance: CETIRIZINE HYDROCHLORIDE
     Indication: Pruritus
     Route: 048
     Dates: start: 20190502, end: 20250603
  2. 1000mg vitamin D [Concomitant]
  3. B12 [Concomitant]
  4. FISH OIL [Concomitant]
     Active Substance: FISH OIL
  5. multivitamin and 1 tbs Psyllium daily [Concomitant]

REACTIONS (5)
  - Pruritus [None]
  - Skin haemorrhage [None]
  - Scratch [None]
  - Insomnia [None]
  - Withdrawal syndrome [None]

NARRATIVE: CASE EVENT DATE: 20190524
